FAERS Safety Report 8991078 (Version 1)
Quarter: 2012Q4

REPORT INFORMATION
  Report Type: 
  Country: US (occurrence: None)
  Receive Date: 20121227
  Receipt Date: 20121227
  Transmission Date: 20130627
  Serious: Yes (Hospitalization)
  Sender: FDA-Public Use
  Company Number: None

PATIENT
  Sex: Female
  Weight: 56.8 kg

DRUGS (2)
  1. CARBOPLATIN [Suspect]
     Dates: end: 20121120
  2. PACLITAXEL (TAXOL) [Suspect]
     Dates: end: 20121127

REACTIONS (1)
  - Pneumothorax [None]
